FAERS Safety Report 8129302-2 (Version None)
Quarter: 2012Q1

REPORT INFORMATION
  Report Type: 
  Country: None (occurrence: None)
  Receive Date: 20120210
  Receipt Date: 20120202
  Transmission Date: 20120608
  Serious: Yes (Hospitalization)
  Sender: FDA-Public Use
  Company Number: PHHY2012IT008505

PATIENT
  Age: 52 Year
  Sex: Female

DRUGS (3)
  1. DOCETAXEL [Suspect]
  2. EPIRUBICIN [Suspect]
  3. FILGRASTIM [Suspect]

REACTIONS (2)
  - INTESTINAL ISCHAEMIA [None]
  - HYPOVOLAEMIC SHOCK [None]
